FAERS Safety Report 9370418 (Version 2)
Quarter: 2013Q3

REPORT INFORMATION
  Report Type: Report from Study
  Country: DE (occurrence: DE)
  Receive Date: 20130626
  Receipt Date: 20130703
  Transmission Date: 20140515
  Serious: Yes (Hospitalization)
  Sender: FDA-Public Use
  Company Number: DE-FRI-1000021661

PATIENT
  Age: 84 Year
  Sex: Male
  Weight: 74 kg

DRUGS (27)
  1. ROFLUMILAST [Suspect]
     Indication: CHRONIC OBSTRUCTIVE PULMONARY DISEASE
     Dosage: 500 MCG
     Route: 048
     Dates: start: 20110215, end: 20110225
  2. ROFLUMILAST [Suspect]
     Dosage: 500 MCG
     Route: 048
     Dates: start: 20110304, end: 20110405
  3. BUDES [Concomitant]
     Route: 055
     Dates: start: 20110215, end: 201109
  4. FORMOTOP [Concomitant]
     Dates: start: 20110215, end: 201109
  5. TOREM [Concomitant]
     Dosage: 10 MG
  6. FORADIL [Concomitant]
     Dosage: 24 MCG
  7. SPIRIVA [Concomitant]
     Dosage: 2 DOSAGE FORMS
     Dates: start: 20110215, end: 201109
  8. BUDESONIDE [Concomitant]
     Dosage: 2 DOSAGE FORMS
  9. ACETYLCYSTEINE [Concomitant]
     Dosage: 1200 MG
  10. ACETYLCYSTEINE [Concomitant]
     Dosage: 600MG
  11. ACETYLSALICYLIC ACID [Concomitant]
     Indication: CORONARY ARTERY DISEASE
     Dosage: 100 MG
     Dates: start: 20110218, end: 201109
  12. PANTOZOL [Concomitant]
     Indication: GASTRIC HAEMORRHAGE
     Dosage: 80 MG
     Dates: start: 20110215, end: 201109
  13. SORTIS [Concomitant]
     Indication: PROPHYLAXIS
     Dosage: 20 MG
  14. DILTAHEXAL [Concomitant]
     Indication: CORONARY ARTERY DISEASE
     Dosage: 180 MG
     Dates: start: 20110215, end: 201109
  15. DILTAHEXAL [Concomitant]
     Indication: HYPERTENSION
  16. ATACAND (CANDESARTAN CILEXETIL) [Concomitant]
     Dosage: 8 MG
  17. OXYGEN [Concomitant]
     Dosage: 3 L/MIN
     Dates: start: 20110215, end: 201109
  18. ALLOPURINOL [Concomitant]
     Indication: GOUT
     Dates: start: 20110215, end: 201107
  19. FERROUS SULFATE [Concomitant]
     Indication: IRON DEFICIENCY
     Dates: start: 20110215, end: 201107
  20. FERROUS SULFATE [Concomitant]
     Indication: ANAEMIA
  21. FUROSEMIDE [Concomitant]
     Indication: CARDIAC FAILURE
     Dates: start: 20110215, end: 201109
  22. PLAVIX [Concomitant]
     Indication: PERIPHERAL ARTERIAL OCCLUSIVE DISEASE
     Dates: start: 20110215, end: 201107
  23. PARACETAMOL [Concomitant]
     Dates: start: 20110215, end: 201107
  24. AVALOX [Concomitant]
     Dates: start: 20110505, end: 20110515
  25. TEVETEN [Concomitant]
     Indication: HYPERTENSION
     Dates: start: 20110215, end: 201109
  26. PREDNISOLON [Concomitant]
     Dosage: 20G-10G-5G
     Dates: start: 20110503, end: 201106
  27. CORTISONE [Concomitant]
     Dates: end: 20110710

REACTIONS (5)
  - Chronic obstructive pulmonary disease [Recovering/Resolving]
  - Melaena [Unknown]
  - General physical health deterioration [Recovering/Resolving]
  - Dyspnoea [Recovering/Resolving]
  - Nausea [Recovering/Resolving]
